FAERS Safety Report 22227847 (Version 14)
Quarter: 2024Q1

REPORT INFORMATION
  Report Type: Spontaneous
  Country: US (occurrence: US)
  Receive Date: 20230419
  Receipt Date: 20240102
  Transmission Date: 20240410
  Serious: Yes (Other)
  Sender: FDA-Public Use
  Company Number: US-PFIZER INC-PV202300068260

PATIENT
  Age: 64 Year
  Sex: Male
  Weight: 104.33 kg

DRUGS (5)
  1. GENOTROPIN [Suspect]
     Active Substance: SOMATROPIN
     Indication: Craniocerebral injury
     Dosage: 1 MG/DAY, 2 DAYS/WEEK
  2. GENOTROPIN [Suspect]
     Active Substance: SOMATROPIN
     Indication: Brain injury
     Dosage: 1 MG, BID (TWICE A DAY)
     Dates: start: 202302
  3. GENOTROPIN [Suspect]
     Active Substance: SOMATROPIN
     Dosage: 1 MG, DAILY
  4. GENOTROPIN [Suspect]
     Active Substance: SOMATROPIN
     Dosage: UNK
     Dates: start: 20230415
  5. GENOTROPIN [Suspect]
     Active Substance: SOMATROPIN
     Dosage: UNK
     Dates: start: 20230720

REACTIONS (15)
  - Marfan^s syndrome [Unknown]
  - IVth nerve paralysis [Unknown]
  - Trigeminal palsy [Unknown]
  - Drug dose omission by device [Unknown]
  - Off label use [Unknown]
  - Accidental exposure to product [Unknown]
  - Wrong technique in device usage process [Unknown]
  - Device information output issue [Unknown]
  - Acquired growth hormone resistance [Unknown]
  - Device leakage [Unknown]
  - Device issue [Unknown]
  - Arthralgia [Unknown]
  - Diplopia [Unknown]
  - Exposure via skin contact [Unknown]
  - Needle issue [Unknown]
